FAERS Safety Report 19901269 (Version 1)
Quarter: 2021Q3

REPORT INFORMATION
  Report Type: Spontaneous
  Country: US (occurrence: US)
  Receive Date: 20210929
  Receipt Date: 20210929
  Transmission Date: 20211014
  Serious: No
  Sender: FDA-Public Use
  Company Number: US-BLUEPRINT MEDICINES CORPORATION-SP-US-2021-001583

PATIENT
  Age: 76 Year
  Sex: Male

DRUGS (1)
  1. AYVAKIT [Suspect]
     Active Substance: AVAPRITINIB
     Indication: GASTROINTESTINAL STROMAL TUMOUR
     Route: 048
     Dates: start: 20210726

REACTIONS (7)
  - Diarrhoea [Unknown]
  - Nausea [Unknown]
  - Platelet count decreased [Unknown]
  - Decreased appetite [Unknown]
  - Dysgeusia [Unknown]
  - Constipation [Recovered/Resolved]
  - Asthenia [Unknown]
